FAERS Safety Report 5997697-1 (Version None)
Quarter: 2008Q4

REPORT INFORMATION
  Report Type: 
  Country: None (occurrence: None)
  Receive Date: 20081212
  Receipt Date: 20081119
  Transmission Date: 20090506
  Serious: Yes (Other)
  Sender: FDA-Public Use
  Company Number: US-ABBOTT-08P-163-0488493-00

PATIENT
  Sex: Female
  Weight: 71.732 kg

DRUGS (3)
  1. HUMIRA [Suspect]
     Indication: CROHN'S DISEASE
     Route: 058
     Dates: start: 20070801
  2. PANCRELIPASE [Concomitant]
     Indication: CROHN'S DISEASE
  3. IRON [Concomitant]
     Indication: CROHN'S DISEASE

REACTIONS (1)
  - BREAST CANCER [None]
